FAERS Safety Report 18366586 (Version 1)
Quarter: 2020Q4

REPORT INFORMATION
  Report Type: Spontaneous
  Country: HR (occurrence: HR)
  Receive Date: 20201009
  Receipt Date: 20201009
  Transmission Date: 20210114
  Serious: Yes (Hospitalization, Other)
  Sender: FDA-Public Use
  Company Number: HR-PFIZER INC-2020384958

PATIENT
  Age: 57 Year
  Sex: Female

DRUGS (7)
  1. LETROZOLE. [Suspect]
     Active Substance: LETROZOLE
     Dosage: UNK
     Route: 065
     Dates: start: 20190626, end: 20190918
  2. FULVESTRANT. [Suspect]
     Active Substance: FULVESTRANT
     Dosage: UNK
     Route: 065
     Dates: start: 20190926
  3. RIBOCICLIB. [Suspect]
     Active Substance: RIBOCICLIB
     Dosage: UNK, 2 TBL A 200 MG 1D PAUSE, 1 WEEK A TBL A 200 MG/7D
     Route: 065
     Dates: start: 20190726, end: 20190819
  4. RIBOCICLIB. [Suspect]
     Active Substance: RIBOCICLIB
     Dosage: UNK
     Route: 065
     Dates: start: 20190626, end: 20190910
  5. PALBOCICLIB [Suspect]
     Active Substance: PALBOCICLIB
     Dosage: UNK
     Route: 065
     Dates: start: 20200213
  6. RIBOCICLIB. [Suspect]
     Active Substance: RIBOCICLIB
     Dosage: UNK, 1TBL A 200MG/5D
     Route: 065
     Dates: start: 20191010, end: 20191010
  7. IBANDRONATE SODIUM. [Suspect]
     Active Substance: IBANDRONATE SODIUM
     Dosage: UNK
     Route: 065
     Dates: start: 20190626, end: 20190918

REACTIONS (5)
  - Pyrexia [Unknown]
  - Hepatotoxicity [Unknown]
  - Diarrhoea [Unknown]
  - Vomiting [Unknown]
  - C-reactive protein increased [Unknown]

NARRATIVE: CASE EVENT DATE: 20190710
